FAERS Safety Report 9778399 (Version 1)
Quarter: 2013Q4

REPORT INFORMATION
  Report Type: Spontaneous
  Country: IT (occurrence: IT)
  Receive Date: 20131223
  Receipt Date: 20131223
  Transmission Date: 20140711
  Serious: Yes (Death, Hospitalization)
  Sender: FDA-Public Use
  Company Number: IT-B.I. PHARMACEUTICALS,INC./RIDGEFIELD-2013-BI-43120IT

PATIENT
  Age: 88 Year
  Sex: Female

DRUGS (5)
  1. PRADAXA [Suspect]
     Dosage: 220 MG
     Route: 048
     Dates: start: 20131020, end: 20131120
  2. DILTIAZEM [Concomitant]
     Route: 048
  3. PANTOPRAZOLE [Concomitant]
     Route: 048
  4. AMLODIPINE [Concomitant]
     Route: 048
  5. LANOXIN [Concomitant]
     Route: 048

REACTIONS (5)
  - Pneumonia [Fatal]
  - Renal failure acute [Unknown]
  - Haematuria [Unknown]
  - Dysphagia [Unknown]
  - Purpura [Unknown]
